FAERS Safety Report 13852289 (Version 1)
Quarter: 2017Q3

REPORT INFORMATION
  Report Type: Spontaneous
  Country: US (occurrence: US)
  Receive Date: 20170809
  Receipt Date: 20170809
  Transmission Date: 20171127
  Serious: No
  Sender: FDA-Public Use
  Company Number: US-BAYER-2017-149601

PATIENT
  Sex: Female

DRUGS (1)
  1. CIPRO [Suspect]
     Active Substance: CIPROFLOXACIN HYDROCHLORIDE
     Indication: ENTEROCOLITIS INFECTIOUS
     Dosage: 500 MG, UNK
     Route: 048

REACTIONS (3)
  - Bowel movement irregularity [Unknown]
  - Haematuria [Unknown]
  - Diarrhoea [Unknown]
